FAERS Safety Report 14491997 (Version 1)
Quarter: 2018Q1

REPORT INFORMATION
  Report Type: Spontaneous
  Country: US (occurrence: US)
  Receive Date: 20180206
  Receipt Date: 20180206
  Transmission Date: 20180509
  Serious: Yes (Life-Threatening, Hospitalization, Other)
  Sender: FDA-Public Use
  Company Number: US-JNJFOC-20180204401

PATIENT
  Sex: Male

DRUGS (1)
  1. XARELTO [Suspect]
     Active Substance: RIVAROXABAN
     Indication: PRODUCT USED FOR UNKNOWN INDICATION
     Route: 048
     Dates: start: 20150505, end: 20160312

REACTIONS (24)
  - Hospitalisation [Unknown]
  - Surgery [Unknown]
  - Fear of death [Unknown]
  - Endotracheal intubation [Unknown]
  - Muscular weakness [Unknown]
  - Myalgia [Unknown]
  - Hemiplegia [Unknown]
  - Respiratory distress [Unknown]
  - Decreased appetite [Unknown]
  - Arthralgia [Unknown]
  - Atrophy [Unknown]
  - Decreased immune responsiveness [Unknown]
  - Scar [Unknown]
  - Deformity [Unknown]
  - Anxiety [Unknown]
  - Cerebrovascular accident [Unknown]
  - Headache [Unknown]
  - Brain injury [Unknown]
  - Nausea [Unknown]
  - Dysphagia [Unknown]
  - Fatigue [Unknown]
  - Weight increased [Unknown]
  - Erectile dysfunction [Unknown]
  - Insomnia [Unknown]
